FAERS Safety Report 7508761-X (Version None)
Quarter: 2011Q2

REPORT INFORMATION
  Report Type: 
  Country: None (occurrence: None)
  Receive Date: 20110527
  Receipt Date: 20110106
  Transmission Date: 20111010
  Serious: No
  Sender: FDA-Public Use
  Company Number: A0905524A

PATIENT
  Age: 54 Year
  Sex: Male

DRUGS (1)
  1. VENTOLIN [Suspect]
     Route: 065
     Dates: start: 20091020

REACTIONS (3)
  - OVERDOSE [None]
  - INFLUENZA [None]
  - DRUG ADMINISTRATION ERROR [None]
